FAERS Safety Report 14783503 (Version 4)
Quarter: 2019Q2

REPORT INFORMATION
  Report Type: Spontaneous
  Country: US (occurrence: US)
  Receive Date: 20180420
  Receipt Date: 20190430
  Transmission Date: 20190711
  Serious: Yes (Hospitalization, Other)
  Sender: FDA-Public Use
  Company Number: US-ASTRAZENECA-2018SE49227

PATIENT
  Age: 739 Month
  Sex: Male
  Weight: 77.1 kg

DRUGS (27)
  1. NEXIUM [Suspect]
     Active Substance: ESOMEPRAZOLE MAGNESIUM
     Indication: GASTROOESOPHAGEAL REFLUX DISEASE
     Dosage: GENERIC
     Route: 065
     Dates: start: 20100407, end: 20110815
  2. PREVACID [Suspect]
     Active Substance: LANSOPRAZOLE
     Indication: GASTROOESOPHAGEAL REFLUX DISEASE
     Route: 065
     Dates: start: 2005, end: 2006
  3. PRILOSEC OTC [Suspect]
     Active Substance: OMEPRAZOLE MAGNESIUM
     Route: 048
     Dates: start: 200306, end: 201108
  4. LANSOPRAZOLE. [Suspect]
     Active Substance: LANSOPRAZOLE
     Route: 048
     Dates: start: 200306, end: 201108
  5. ACIPHEX [Suspect]
     Active Substance: RABEPRAZOLE SODIUM
     Route: 048
     Dates: start: 200306, end: 201108
  6. AMITRIPTYLINE [Concomitant]
     Active Substance: AMITRIPTYLINE
     Indication: ANTIDEPRESSANT THERAPY
  7. PRILOSEC [Suspect]
     Active Substance: OMEPRAZOLE MAGNESIUM
     Indication: GASTROOESOPHAGEAL REFLUX DISEASE
     Route: 048
     Dates: start: 200306, end: 201108
  8. PREVACID [Suspect]
     Active Substance: LANSOPRAZOLE
     Indication: GASTROOESOPHAGEAL REFLUX DISEASE
     Route: 065
     Dates: start: 20020101, end: 20071231
  9. ALLOPURINOL. [Concomitant]
     Active Substance: ALLOPURINOL
     Indication: NEPHROLITHIASIS
  10. NEXIUM 24HR [Suspect]
     Active Substance: ESOMEPRAZOLE MAGNESIUM
     Route: 048
     Dates: start: 200306, end: 201108
  11. PROTONIX [Suspect]
     Active Substance: PANTOPRAZOLE SODIUM
     Route: 048
     Dates: start: 200306, end: 201108
  12. LOSARTAN. [Concomitant]
     Active Substance: LOSARTAN
     Indication: HYPERTENSION
  13. BENAZEPRIL [Concomitant]
     Active Substance: BENAZEPRIL HYDROCHLORIDE
  14. VITAMIN B12 [Concomitant]
     Active Substance: CYANOCOBALAMIN
  15. VITAMIN D2 [Concomitant]
     Active Substance: ERGOCALCIFEROL
  16. PRILOSEC [Suspect]
     Active Substance: OMEPRAZOLE MAGNESIUM
     Indication: GASTROOESOPHAGEAL REFLUX DISEASE
     Dosage: GENERIC
     Route: 065
     Dates: start: 20120410, end: 20130110
  17. TRAMADOL. [Concomitant]
     Active Substance: TRAMADOL
     Indication: PAIN
  18. NEXIUM [Suspect]
     Active Substance: ESOMEPRAZOLE MAGNESIUM
     Indication: GASTROOESOPHAGEAL REFLUX DISEASE
     Route: 048
     Dates: start: 200306, end: 201108
  19. DEXILANT [Suspect]
     Active Substance: DEXLANSOPRAZOLE
     Route: 048
     Dates: start: 200306, end: 201108
  20. AMOXICILLIN. [Concomitant]
     Active Substance: AMOXICILLIN
     Indication: INFECTION
  21. COZAAR [Concomitant]
     Active Substance: LOSARTAN POTASSIUM
     Indication: HYPERTENSION
  22. FUROSEMIDE. [Concomitant]
     Active Substance: FUROSEMIDE
     Indication: OEDEMA
  23. IRON [Concomitant]
     Active Substance: IRON
  24. NEXIUM [Suspect]
     Active Substance: ESOMEPRAZOLE MAGNESIUM
     Indication: GASTROOESOPHAGEAL REFLUX DISEASE
     Route: 048
     Dates: start: 20010601, end: 20050405
  25. NEXIUM [Suspect]
     Active Substance: ESOMEPRAZOLE MAGNESIUM
     Indication: GASTROOESOPHAGEAL REFLUX DISEASE
     Route: 048
     Dates: start: 2001, end: 201112
  26. VIMOVO [Suspect]
     Active Substance: ESOMEPRAZOLE MAGNESIUM\NAPROXEN
     Route: 048
     Dates: start: 200306, end: 201108
  27. HYDRALAZINE [Concomitant]
     Active Substance: HYDRALAZINE HYDROCHLORIDE
     Indication: HYPERTENSION

REACTIONS (3)
  - Renal injury [Unknown]
  - Chronic kidney disease [Not Recovered/Not Resolved]
  - Renal failure [Unknown]

NARRATIVE: CASE EVENT DATE: 200908
